FAERS Safety Report 21527534 (Version 1)
Quarter: 2022Q4

REPORT INFORMATION
  Report Type: Report from Study
  Country: CA (occurrence: CA)
  Receive Date: 20221031
  Receipt Date: 20221031
  Transmission Date: 20230113
  Serious: Yes (Life-Threatening, Hospitalization, Other)
  Sender: FDA-Public Use
  Company Number: None

PATIENT
  Age: 40 Year
  Sex: Female

DRUGS (12)
  1. TOPIRAMATE [Interacting]
     Active Substance: TOPIRAMATE
     Indication: Product used for unknown indication
  2. GABAPENTIN [Interacting]
     Active Substance: GABAPENTIN
     Indication: Migraine
  3. ERENUMAB-AOOE [Interacting]
     Active Substance: ERENUMAB-AOOE
     Indication: Migraine
  4. ERENUMAB [Interacting]
     Active Substance: ERENUMAB
     Indication: Migraine
     Dosage: 1 EVERY 1 MONTHS
     Route: 058
  5. TOPAMAX [Interacting]
     Active Substance: TOPIRAMATE
     Indication: Product used for unknown indication
  6. ZOPICLONE [Interacting]
     Active Substance: ZOPICLONE
     Indication: Product used for unknown indication
  7. PANTOPRAZOLE [Concomitant]
     Active Substance: PANTOPRAZOLE
     Indication: Product used for unknown indication
  8. ERENUMAB [Interacting]
     Active Substance: ERENUMAB
     Indication: Migraine
  9. ERENUMAB [Interacting]
     Active Substance: ERENUMAB
     Indication: Migraine
  10. GABAPENTIN [Interacting]
     Active Substance: GABAPENTIN
     Indication: Migraine
  11. GABAPENTIN [Interacting]
     Active Substance: GABAPENTIN
     Indication: Migraine
     Dosage: 1 EVERY 1 DAYS
  12. TOPIRAMATE [Interacting]
     Active Substance: TOPIRAMATE
     Indication: Product used for unknown indication

REACTIONS (18)
  - Amnesia [Recovered/Resolved]
  - Aphasia [Recovered/Resolved]
  - Blood pressure increased [Recovered/Resolved]
  - Diarrhoea [Recovered/Resolved]
  - Drug interaction [Unknown]
  - Feeling hot [Recovered/Resolved]
  - Hyperhidrosis [Recovered/Resolved]
  - Mental impairment [Recovered/Resolved]
  - Panic attack [Recovered/Resolved]
  - Drug ineffective [Unknown]
  - Constipation [Recovered/Resolved]
  - Epigastric discomfort [Recovered/Resolved]
  - Feeling abnormal [Recovered/Resolved]
  - Gastrointestinal haemorrhage [Recovered/Resolved]
  - Migraine [Recovered/Resolved]
  - Osteitis [Unknown]
  - Peptic ulcer perforation [Recovered/Resolved]
  - Sepsis [Recovered/Resolved]
